FAERS Safety Report 19918522 (Version 1)
Quarter: 2021Q4

REPORT INFORMATION
  Report Type: Spontaneous
  Country: US (occurrence: US)
  Receive Date: 20211005
  Receipt Date: 20211005
  Transmission Date: 20220303
  Serious: Yes (Other)
  Sender: FDA-Public Use
  Company Number: None

PATIENT
  Age: 44 Year
  Sex: Female
  Weight: 81 kg

DRUGS (5)
  1. TEPEZZA [Suspect]
     Active Substance: TEPROTUMUMAB-TRBW
     Indication: Endocrine ophthalmopathy
     Dosage: ?          OTHER FREQUENCY:EVERY 3 WEEKS;
     Route: 042
     Dates: start: 20210828
  2. SYNTHROID [Concomitant]
     Active Substance: LEVOTHYROXINE SODIUM
  3. CYTOMEL [Concomitant]
     Active Substance: LIOTHYRONINE SODIUM
  4. METAFORMIN [Concomitant]
  5. LABETALOL [Concomitant]
     Active Substance: LABETALOL\LABETALOL HYDROCHLORIDE

REACTIONS (6)
  - Amenorrhoea [None]
  - Muscle spasms [None]
  - Alopecia [None]
  - Tinnitus [None]
  - Diarrhoea [None]
  - Gastric disorder [None]

NARRATIVE: CASE EVENT DATE: 20211001
